FAERS Safety Report 11634768 (Version 1)
Quarter: 2015Q4

REPORT INFORMATION
  Report Type: Report from Study
  Country: BR (occurrence: BR)
  Receive Date: 20151015
  Receipt Date: 20151015
  Transmission Date: 20160304
  Serious: Yes (Disabling, Other)
  Sender: FDA-Public Use
  Company Number: BR-ABBVIE-15K-020-1480003-00

PATIENT
  Sex: Female
  Weight: 68 kg

DRUGS (4)
  1. PREDNISONE. [Concomitant]
     Active Substance: PREDNISONE
     Indication: ARTHRITIS
     Route: 048
     Dates: start: 2000
  2. HUMIRA [Suspect]
     Active Substance: ADALIMUMAB
     Route: 058
     Dates: start: 20150929
  3. FOLIC ACID. [Concomitant]
     Active Substance: FOLIC ACID
     Indication: IMMUNODEFICIENCY
     Route: 048
     Dates: start: 20110104, end: 201507
  4. HUMIRA [Suspect]
     Active Substance: ADALIMUMAB
     Indication: RHEUMATOID ARTHRITIS
     Route: 058
     Dates: start: 20110104, end: 201506

REACTIONS (2)
  - Arthralgia [Unknown]
  - Visual acuity reduced [Not Recovered/Not Resolved]
